FAERS Safety Report 20013378 (Version 1)
Quarter: 2021Q4

REPORT INFORMATION
  Report Type: Report from Study
  Country: ES (occurrence: ES)
  Receive Date: 20211029
  Receipt Date: 20211029
  Transmission Date: 20220303
  Serious: Yes (Death, Hospitalization)
  Sender: FDA-Public Use
  Company Number: None

PATIENT
  Age: 83 Year
  Sex: Female

DRUGS (10)
  1. MORPHINE SULFATE [Suspect]
     Active Substance: MORPHINE SULFATE
     Indication: Osteoarthritis
     Dosage: UNK (60 MG CADA 12 HORAS EN COMPRIMIDOS)
     Route: 048
     Dates: start: 20210222, end: 20210228
  2. MORPHINE SULFATE [Suspect]
     Active Substance: MORPHINE SULFATE
     Indication: Arthritis
     Dosage: UNK (15 MG CADA 12 HORAS COMPRIMIDOS)
     Route: 048
     Dates: start: 20210222, end: 20210228
  3. LIDOCAINA                          /00033401/ [Concomitant]
     Dosage: UNK (APOSITO CUTANEO LIDOCAINA 700 MG 30 APOSITOS. 1 CADA 24 HORAS.)
     Route: 062
     Dates: start: 20180104
  4. METAMIZOLE [Concomitant]
     Active Substance: METAMIZOLE
     Indication: Analgesic therapy
     Dosage: UNK (575 MG EN 20 CAPSULAS. 1 CAPSULA CADA 8 HORAS.)
     Route: 048
     Dates: start: 20140828
  5. FLUTICASONE FUROATE\VILANTEROL TRIFENATATE [Concomitant]
     Active Substance: FLUTICASONE FUROATE\VILANTEROL TRIFENATATE
     Dosage: UNK (1 DOSIS CADA 4 HORAS)
     Route: 055
     Dates: start: 20210202
  6. ACETAMINOPHEN [Concomitant]
     Active Substance: ACETAMINOPHEN
     Indication: Analgesic therapy
     Dosage: UNK (1 GRAMO, 40 COMPRIMIDOS. 1 COMPRIMIDO CADA 8 HORAS.)
     Route: 048
     Dates: start: 20160329
  7. SULODEXIDE [Concomitant]
     Active Substance: SULODEXIDE
     Dosage: 150 UI ENVASE 60 CAPSULAS, 2 CAPSULAS CADA 12 HORAS
     Route: 048
     Dates: start: 20190925
  8. METOCLOPRAMIDE [Concomitant]
     Active Substance: METOCLOPRAMIDE
     Indication: Antiemetic supportive care
     Dosage: 10 MG 30 COMPRIMIDOS. 1 COMPRIMIDO CADA 12 HORAS
     Route: 048
     Dates: start: 20210223
  9. STREPTOKINASE-STREPTODORNASE [Concomitant]
     Active Substance: STREPTOKINASE-STREPTODORNASE
     Dosage: 1 COMPRIMIDO CADA 8 HORAS
     Route: 048
     Dates: start: 20210219
  10. CARBOCYSTEINE [Concomitant]
     Active Substance: CARBOCYSTEINE
     Dosage: 2.70 GRAMOS, 20 SOBRES. 1 SOBRE CADA 24 HORAS
     Route: 048
     Dates: start: 20210202

REACTIONS (2)
  - Dyspnoea [Fatal]
  - Respiratory failure [Fatal]

NARRATIVE: CASE EVENT DATE: 20210223
